FAERS Safety Report 7767016-9 (Version None)
Quarter: 2011Q3

REPORT INFORMATION
  Report Type: 
  Country: None (occurrence: None)
  Receive Date: 20110922
  Receipt Date: 20110920
  Transmission Date: 20111222
  Serious: Yes (Hospitalization)
  Sender: FDA-Public Use
  Company Number: JP-EISAI INC-E2020-09441-CLI-JP

PATIENT
  Sex: Female

DRUGS (4)
  1. ONEALFA [Suspect]
     Indication: OSTEOPOROSIS
     Route: 048
     Dates: start: 20071107
  2. ARICEPT [Suspect]
     Indication: DEMENTIA ALZHEIMER'S TYPE
     Route: 048
     Dates: start: 20101020, end: 20110323
  3. EVISTA [Suspect]
     Indication: OSTEOPOROSIS
     Route: 048
     Dates: start: 20071107
  4. AMLODIPINE [Suspect]
     Indication: HYPERTENSION
     Route: 048
     Dates: start: 20091021

REACTIONS (4)
  - ARRHYTHMIA [None]
  - ENTEROCOLITIS [None]
  - PYELONEPHRITIS [None]
  - BILE DUCT STONE [None]
